FAERS Safety Report 5304517-7 (Version None)
Quarter: 2007Q2

REPORT INFORMATION
  Report Type: 
  Country: None (occurrence: None)
  Receive Date: 20070419
  Receipt Date: 20070419
  Transmission Date: 20071010
  Serious: Yes (Hospitalization)
  Sender: FDA-Public Use
  Company Number: None

PATIENT
  Age: 18 Year
  Sex: Male
  Weight: 70.4 kg

DRUGS (1)
  1. LEVOFLOXACIN [Suspect]
     Indication: PHARYNGITIS STREPTOCOCCAL
     Dosage: 500 MG Q 24 HR X 7 DAYS PO
     Route: 048
     Dates: start: 20070413, end: 20070414

REACTIONS (6)
  - BACK PAIN [None]
  - CHAPPED LIPS [None]
  - LIP HAEMORRHAGE [None]
  - NAUSEA [None]
  - STEVENS-JOHNSON SYNDROME [None]
  - VOMITING [None]
